FAERS Safety Report 9350074 (Version 1)
Quarter: 2013Q2

REPORT INFORMATION
  Report Type: Spontaneous
  Country: US (occurrence: US)
  Receive Date: 20130616
  Receipt Date: 20130616
  Transmission Date: 20140414
  Serious: No
  Sender: FDA-Public Use
  Company Number: US-ASTRAZENECA-2013SE40770

PATIENT
  Age: 53 Year
  Sex: Female
  Weight: 59.9 kg

DRUGS (5)
  1. CRESTOR [Suspect]
     Indication: BLOOD CHOLESTEROL INCREASED
     Route: 048
     Dates: start: 2011
  2. BABY ASPIRIN [Suspect]
     Indication: BLOOD DISORDER
     Route: 048
     Dates: start: 2005
  3. FISH OIL [Concomitant]
     Indication: BLOOD DISORDER
  4. OMEPRAZOLE [Concomitant]
  5. ZANTAC [Concomitant]

REACTIONS (9)
  - Chest pain [Recovered/Resolved]
  - Gastrointestinal disorder [Not Recovered/Not Resolved]
  - Gastrooesophageal reflux disease [Not Recovered/Not Resolved]
  - Gastritis [Not Recovered/Not Resolved]
  - Epistaxis [Not Recovered/Not Resolved]
  - Ocular hypertension [Recovering/Resolving]
  - Oesophageal disorder [Not Recovered/Not Resolved]
  - Abdominal discomfort [Not Recovered/Not Resolved]
  - Constipation [Not Recovered/Not Resolved]
